FAERS Safety Report 16430842 (Version 1)
Quarter: 2019Q2

REPORT INFORMATION
  Report Type: Spontaneous
  Country: US (occurrence: US)
  Receive Date: 20190614
  Receipt Date: 20190614
  Transmission Date: 20190711
  Serious: Yes (Other)
  Sender: FDA-Public Use
  Company Number: US-PFIZER INC-2019253722

PATIENT
  Age: 67 Year
  Sex: Male
  Weight: 77.11 kg

DRUGS (3)
  1. LYRICA [Suspect]
     Active Substance: PREGABALIN
     Indication: FIBROMYALGIA
     Dosage: 75 MG, 2X/DAY
     Dates: start: 201901
  2. LYRICA [Suspect]
     Active Substance: PREGABALIN
     Indication: SCIATICA
  3. LYRICA [Suspect]
     Active Substance: PREGABALIN
     Indication: NERVE INJURY

REACTIONS (6)
  - Intervertebral disc displacement [Unknown]
  - Thrombocytopenia [Unknown]
  - Post laminectomy syndrome [Unknown]
  - Osteonecrosis [Unknown]
  - Intervertebral disc disorder [Unknown]
  - Lumbosacral radiculopathy [Unknown]
